FAERS Safety Report 16899421 (Version 1)
Quarter: 2019Q4

REPORT INFORMATION
  Report Type: Other
  Country: ES (occurrence: ES)
  Receive Date: 20191009
  Receipt Date: 20191009
  Transmission Date: 20200122
  Serious: Yes (Other)
  Sender: FDA-Public Use
  Company Number: ES-APOTEX-2019AP022942

PATIENT
  Age: 1 Year
  Sex: Female
  Weight: 10.4 kg

DRUGS (2)
  1. FLECAINIDE [Suspect]
     Active Substance: FLECAINIDE
     Indication: TACHYCARDIA
     Dosage: 20 MG, Q.12H
     Route: 048
     Dates: start: 20190606
  2. LANACORDIN [Suspect]
     Active Substance: DIGOXIN
     Indication: TACHYCARDIA
     Dosage: 50 ?G, Q.12H
     Route: 048
     Dates: start: 20190606

REACTIONS (1)
  - Petit mal epilepsy [Unknown]

NARRATIVE: CASE EVENT DATE: 20190701
